FAERS Safety Report 8953633 (Version 1)
Quarter: 2012Q4

REPORT INFORMATION
  Report Type: 
  Country: CA (occurrence: CA)
  Receive Date: 20121206
  Receipt Date: 20121206
  Transmission Date: 20130627
  Serious: Yes (Other)
  Sender: FDA-Public Use
  Company Number: CA-ROCHE-GNE287619

PATIENT
  Sex: Female
  Weight: 80.39 kg

DRUGS (4)
  1. XOLAIR [Suspect]
     Indication: ASTHMA
     Dosage: 150 mg, 1/Month
     Route: 058
     Dates: start: 20090313, end: 20100512
  2. XOLAIR [Suspect]
     Dosage: 150 mg, 1/Month
     Route: 058
     Dates: start: 20091216
  3. XOLAIR [Suspect]
     Dosage: 150 mg, 1/Month
     Route: 058
     Dates: start: 20100113
  4. RIVOTRIL [Concomitant]
     Indication: PRODUCT USED FOR UNKNOWN INDICATION

REACTIONS (4)
  - Dyspnoea [Unknown]
  - Heart rate irregular [Unknown]
  - Condition aggravated [Unknown]
  - Feeling abnormal [Unknown]
